FAERS Safety Report 7105335-X (Version None)
Quarter: 2010Q4

REPORT INFORMATION
  Report Type: 
  Country: None (occurrence: None)
  Receive Date: 20101116
  Receipt Date: 20101111
  Transmission Date: 20110411
  Serious: Yes (Hospitalization, Other)
  Sender: FDA-Public Use
  Company Number: US-SANOFI-AVENTIS-2010SA068942

PATIENT
  Sex: Female

DRUGS (3)
  1. PLAVIX [Suspect]
     Route: 048
     Dates: start: 20050101
  2. NAMENDA [Concomitant]
  3. PEPCID [Concomitant]

REACTIONS (3)
  - NAUSEA [None]
  - RENAL FAILURE CHRONIC [None]
  - TIBIA FRACTURE [None]
